FAERS Safety Report 7487436-X (Version None)
Quarter: 2011Q2

REPORT INFORMATION
  Report Type: 
  Country: None (occurrence: None)
  Receive Date: 20110518
  Receipt Date: 20110411
  Transmission Date: 20111010
  Serious: Yes (Other)
  Sender: FDA-Public Use
  Company Number: US-BAYER-2011-010402

PATIENT
  Weight: 102.4 kg

DRUGS (15)
  1. CLONAZEPAM [Concomitant]
  2. NAPROXEN [Concomitant]
  3. HALFLYTELY-BISACODYL BOWEL KIT [Concomitant]
  4. DICYCLOMINE [Concomitant]
  5. TAMIFLU [Concomitant]
  6. CLINDAMYCIN [Concomitant]
  7. CHOLESTYRAMINE [Concomitant]
  8. LEVAQUIN [Concomitant]
  9. ADDERALL XR 10 [Concomitant]
  10. PROMETHAZINE [Concomitant]
  11. CYMBALTA [Concomitant]
  12. AZITHROMYCIN [Concomitant]
  13. YAZ [Suspect]
     Indication: PREMENSTRUAL SYNDROME
     Dosage: UNK
     Dates: start: 20080301, end: 20090901
  14. MEPERIDINE [Concomitant]
  15. KLONOPIN [Concomitant]

REACTIONS (8)
  - PANCREATITIS [None]
  - ANXIETY [None]
  - PAIN [None]
  - EMOTIONAL DISTRESS [None]
  - DEPRESSION [None]
  - CHOLECYSTITIS CHRONIC [None]
  - FEAR [None]
  - CHOLECYSTECTOMY [None]
